FAERS Safety Report 6044542-4 (Version None)
Quarter: 2009Q1

REPORT INFORMATION
  Report Type: 
  Country: None (occurrence: None)
  Receive Date: 20090120
  Receipt Date: 20090106
  Transmission Date: 20090719
  Serious: Yes (Hospitalization, Other)
  Sender: FDA-Public Use
  Company Number: US-BIOGENIDEC-2007BI014413

PATIENT
  Age: 61 Year
  Sex: Female

DRUGS (1)
  1. AVONEX [Suspect]
     Indication: DRUG USE FOR UNKNOWN INDICATION
     Route: 030
     Dates: start: 20021101

REACTIONS (13)
  - ASTHENIA [None]
  - CHILLS [None]
  - CHOLELITHIASIS [None]
  - DIABETES MELLITUS [None]
  - FATIGUE [None]
  - FEELING COLD [None]
  - GASTROENTERITIS VIRAL [None]
  - NEUROGENIC BLADDER [None]
  - PANCREATITIS ACUTE [None]
  - PNEUMONIA [None]
  - PYREXIA [None]
  - RENAL FAILURE CHRONIC [None]
  - WEIGHT DECREASED [None]
